FAERS Safety Report 9411670 (Version 1)
Quarter: 2013Q3

REPORT INFORMATION
  Report Type: Spontaneous
  Country: US (occurrence: US)
  Receive Date: 20130722
  Receipt Date: 20130722
  Transmission Date: 20140515
  Serious: Yes (Hospitalization)
  Sender: FDA-Public Use
  Company Number: US-JNJFOC-20130709851

PATIENT
  Sex: Male

DRUGS (2)
  1. REMICADE [Suspect]
     Indication: PRODUCT USED FOR UNKNOWN INDICATION
     Dosage: 1ST INFUSION
     Route: 042
     Dates: start: 2013, end: 2013
  2. METHOTREXATE [Concomitant]
     Route: 065

REACTIONS (2)
  - Urticaria [Unknown]
  - Adverse event [Unknown]
